FAERS Safety Report 21353297 (Version 1)
Quarter: 2022Q3

REPORT INFORMATION
  Report Type: Spontaneous
  Country: AU (occurrence: AU)
  Receive Date: 20220920
  Receipt Date: 20220920
  Transmission Date: 20221027
  Serious: Yes (Hospitalization)
  Sender: FDA-Public Use
  Company Number: AU-JNJFOC-20220925922

PATIENT
  Age: 53 Year
  Sex: Male

DRUGS (8)
  1. INVEGA TRINZA [Suspect]
     Active Substance: PALIPERIDONE PALMITATE
     Indication: Schizophrenia
     Route: 030
  2. INVEGA TRINZA [Suspect]
     Active Substance: PALIPERIDONE PALMITATE
  3. INVEGA TRINZA [Suspect]
     Active Substance: PALIPERIDONE PALMITATE
  4. RIFAXIMIN [Concomitant]
     Active Substance: RIFAXIMIN
     Indication: Hepatic encephalopathy
  5. OXAZEPAM [Concomitant]
     Active Substance: OXAZEPAM
  6. LACTULOSE [Concomitant]
     Active Substance: LACTULOSE
     Indication: Hepatic encephalopathy
  7. SPIRONOLACTONE [Concomitant]
     Active Substance: SPIRONOLACTONE
     Indication: Hepatic encephalopathy
  8. OLANZAPINE [Concomitant]
     Active Substance: OLANZAPINE

REACTIONS (1)
  - Encephalitis [Unknown]
